FAERS Safety Report 9726036 (Version 2)
Quarter: 2013Q4

REPORT INFORMATION
  Report Type: Report from Study
  Country: CN (occurrence: CN)
  Receive Date: 20131203
  Receipt Date: 20131210
  Transmission Date: 20140711
  Serious: Yes (Hospitalization)
  Sender: FDA-Public Use
  Company Number: CN-BAYER-2013-142602

PATIENT
  Age: 60 Year
  Sex: Female
  Weight: 49.89 kg

DRUGS (20)
  1. RIOCIGUAT (GUANYLATE CYCLASE STIMULATOR) [Suspect]
     Indication: PULMONARY ARTERIAL HYPERTENSION
     Dosage: UNK
     Dates: start: 20100115, end: 20100127
  2. RIOCIGUAT (GUANYLATE CYCLASE STIMULATOR) [Suspect]
     Indication: PULMONARY ARTERIAL HYPERTENSION
     Dosage: UNK
     Dates: start: 20100128, end: 20100208
  3. RIOCIGUAT (GUANYLATE CYCLASE STIMULATOR) [Suspect]
     Indication: PULMONARY ARTERIAL HYPERTENSION
     Dosage: UNK
     Dates: start: 20100209, end: 20100224
  4. RIOCIGUAT (GUANYLATE CYCLASE STIMULATOR) [Suspect]
     Indication: PULMONARY ARTERIAL HYPERTENSION
     Dosage: UNK
     Dates: start: 20100225, end: 20100310
  5. RIOCIGUAT (GUANYLATE CYCLASE STIMULATOR) [Suspect]
     Indication: PULMONARY ARTERIAL HYPERTENSION
     Dosage: 2
     Dates: start: 20100311, end: 20100408
  6. RIOCIGUAT (GUANYLATE CYCLASE STIMULATOR) [Suspect]
     Indication: PULMONARY ARTERIAL HYPERTENSION
     Dosage: 1.5
     Dates: start: 20100409, end: 20100707
  7. RIOCIGUAT (GUANYLATE CYCLASE STIMULATOR) [Suspect]
     Indication: PULMONARY ARTERIAL HYPERTENSION
     Dosage: 2
     Dates: start: 20100708, end: 20101007
  8. RIOCIGUAT (GUANYLATE CYCLASE STIMULATOR) [Suspect]
     Indication: PULMONARY ARTERIAL HYPERTENSION
     Dosage: 2.5
     Dates: start: 20101008, end: 20110103
  9. RIOCIGUAT (GUANYLATE CYCLASE STIMULATOR) [Suspect]
     Indication: PULMONARY ARTERIAL HYPERTENSION
     Dosage: 2.5
     Dates: start: 20110104, end: 20110405
  10. RIOCIGUAT (GUANYLATE CYCLASE STIMULATOR) [Suspect]
     Indication: PULMONARY ARTERIAL HYPERTENSION
     Dosage: 2.5
     Dates: start: 20110406, end: 20110703
  11. RIOCIGUAT (GUANYLATE CYCLASE STIMULATOR) [Suspect]
     Indication: PULMONARY ARTERIAL HYPERTENSION
     Dosage: 2.5
     Dates: start: 20110704, end: 20110926
  12. RIOCIGUAT (GUANYLATE CYCLASE STIMULATOR) [Suspect]
     Indication: PULMONARY ARTERIAL HYPERTENSION
     Dosage: 2.5
     Dates: start: 20110927, end: 20111227
  13. RIOCIGUAT (GUANYLATE CYCLASE STIMULATOR) [Suspect]
     Indication: PULMONARY ARTERIAL HYPERTENSION
     Dosage: 2.5
     Dates: start: 20111228, end: 20120404
  14. RIOCIGUAT (GUANYLATE CYCLASE STIMULATOR) [Suspect]
     Indication: PULMONARY ARTERIAL HYPERTENSION
     Dosage: 2.5
     Dates: start: 20120405, end: 20120626
  15. RIOCIGUAT (GUANYLATE CYCLASE STIMULATOR) [Suspect]
     Indication: PULMONARY ARTERIAL HYPERTENSION
     Dosage: 2.5
     Dates: start: 20120627, end: 20120927
  16. RIOCIGUAT (GUANYLATE CYCLASE STIMULATOR) [Suspect]
     Indication: PULMONARY ARTERIAL HYPERTENSION
     Dosage: 2.5
     Dates: start: 20120928, end: 20121217
  17. RIOCIGUAT (GUANYLATE CYCLASE STIMULATOR) [Suspect]
     Indication: PULMONARY ARTERIAL HYPERTENSION
     Dosage: 2.5
     Dates: start: 20121218, end: 20130319
  18. RIOCIGUAT (GUANYLATE CYCLASE STIMULATOR) [Suspect]
     Indication: PULMONARY ARTERIAL HYPERTENSION
     Dosage: 2.5
     Dates: start: 20130320, end: 20130626
  19. RIOCIGUAT (GUANYLATE CYCLASE STIMULATOR) [Suspect]
     Indication: PULMONARY ARTERIAL HYPERTENSION
     Dosage: 2.5
     Dates: start: 20130627, end: 20130916
  20. RIOCIGUAT (GUANYLATE CYCLASE STIMULATOR) [Suspect]
     Indication: PULMONARY ARTERIAL HYPERTENSION
     Dosage: 2.5
     Dates: start: 20130917

REACTIONS (5)
  - Immune thrombocytopenic purpura [Recovered/Resolved]
  - Connective tissue disorder [Recovered/Resolved]
  - Pulmonary hypertension [Recovered/Resolved]
  - Systemic lupus erythematosus [Recovered/Resolved]
  - Sjogren^s syndrome [Recovered/Resolved]
